FAERS Safety Report 4571157-7 (Version None)
Quarter: 2005Q1

REPORT INFORMATION
  Report Type: 
  Country: None (occurrence: None)
  Receive Date: 20050202
  Receipt Date: 20050112
  Transmission Date: 20050727
  Serious: Yes (Hospitalization)
  Sender: FDA-Public Use
  Company Number: JP_050105638

PATIENT
  Age: 64 Year
  Sex: Male

DRUGS (2)
  1. GEMZAR [Suspect]
     Indication: PANCREATIC CARCINOMA
     Dosage: 1000 MG/M2 OTHER
     Dates: start: 20010601
  2. RADIOTHERAPY [Concomitant]

REACTIONS (7)
  - COLONIC STENOSIS [None]
  - DIARRHOEA [None]
  - GASTROENTERITIS RADIATION [None]
  - GENERALISED OEDEMA [None]
  - HYPOALBUMINAEMIA [None]
  - HYPOKALAEMIA [None]
  - INTESTINAL MUCOSAL HYPERTROPHY [None]
